FAERS Safety Report 5851877-4 (Version None)
Quarter: 2008Q3

REPORT INFORMATION
  Report Type: 
  Country: None (occurrence: None)
  Receive Date: 20080819
  Receipt Date: 20080808
  Transmission Date: 20090109
  Serious: Yes (Death)
  Sender: FDA-Public Use
  Company Number: GXKR2008GB07521

PATIENT
  Age: 56 Year
  Sex: Female
  Weight: 75 kg

DRUGS (9)
  1. GABAPENTIN [Suspect]
     Indication: PAIN
     Dosage: 600 MG TID ORAL
     Route: 048
     Dates: start: 20080401, end: 20080506
  2. BENDROFLUAZIDE (BENDROFLUAZIDE) [Concomitant]
  3. IBUPROFEN [Concomitant]
  4. NORETHISTERONE (NORETHISTERONE) [Concomitant]
  5. ORAMORPH SR [Concomitant]
  6. RABEPRAZOLE SODIUM [Concomitant]
  7. VALSARTAN [Concomitant]
  8. VENLAFAXINE HCL [Concomitant]
  9. INFUMORPH [Concomitant]

REACTIONS (1)
  - RENAL FAILURE ACUTE [None]
